FAERS Safety Report 6003752-2 (Version None)
Quarter: 2008Q4

REPORT INFORMATION
  Report Type: 
  Country: None (occurrence: None)
  Receive Date: 20081212
  Receipt Date: 20081126
  Transmission Date: 20090506
  Serious: Yes (Other)
  Sender: FDA-Public Use
  Company Number: 2008S1000475

PATIENT
  Sex: Male

DRUGS (1)
  1. ACITRETIN [Suspect]
     Indication: PSORIASIS
     Dosage: 10 MG; TIW; PO
     Route: 048
     Dates: start: 20080701

REACTIONS (12)
  - ABDOMINAL PAIN UPPER [None]
  - ALOPECIA [None]
  - ANOREXIA [None]
  - BLOOD URINE PRESENT [None]
  - CONDITION AGGRAVATED [None]
  - DRUG INEFFECTIVE [None]
  - DRY MOUTH [None]
  - HAEMATOCHEZIA [None]
  - HAEMORRHAGE [None]
  - HEPATIC PAIN [None]
  - PSORIASIS [None]
  - VISUAL ACUITY REDUCED [None]
